FAERS Safety Report 4996598-5 (Version None)
Quarter: 2006Q2

REPORT INFORMATION
  Report Type: 
  Country: None (occurrence: None)
  Receive Date: 20060505
  Receipt Date: 20060427
  Transmission Date: 20061013
  Serious: Yes (Hospitalization)
  Sender: FDA-Public Use
  Company Number: 13954

PATIENT
  Age: 67 Year
  Sex: Female

DRUGS (6)
  1. AMIODARONE HCL [Suspect]
     Indication: ARRHYTHMIA
     Dosage: 450 MG OTH IV
     Route: 042
  2. AMIODARONE HCL [Suspect]
     Indication: ARRHYTHMIA
     Dosage: 900 MG QD IV
     Route: 042
  3. ZOLPIDEM TARTRATE [Suspect]
     Indication: INSOMNIA
  4. CAPTOPRIL [Concomitant]
  5. FUROSEMIDE [Concomitant]
  6. WARFARIN SODIUM [Concomitant]

REACTIONS (9)
  - BUNDLE BRANCH BLOCK LEFT [None]
  - DRUG INTERACTION [None]
  - EJECTION FRACTION DECREASED [None]
  - EXTRASYSTOLES [None]
  - INSOMNIA [None]
  - TORSADE DE POINTES [None]
  - VENTRICULAR EXTRASYSTOLES [None]
  - VENTRICULAR FIBRILLATION [None]
  - VENTRICULAR TACHYCARDIA [None]
